FAERS Safety Report 9159256 (Version 1)
Quarter: 2013Q1

REPORT INFORMATION
  Report Type: Spontaneous
  Country: US (occurrence: None)
  Receive Date: 20130312
  Receipt Date: 20130312
  Transmission Date: 20140127
  Serious: Yes (Hospitalization, Other)
  Sender: FDA-Public Use
  Company Number: None

PATIENT
  Age: 50 Year
  Sex: Female
  Weight: 73.48 kg

DRUGS (3)
  1. WARFARIN SODIUM [Suspect]
     Indication: MITRAL VALVE REPLACEMENT
     Dosage: 7.5MG MONDAY ORAL
     Dates: start: 201201, end: 201303
  2. WARFARIN SODIUM [Suspect]
  3. WARFARIN SODIUM [Suspect]
     Dosage: 5 MG T, W, TH, F, S, SUN  ORAL

REACTIONS (2)
  - International normalised ratio increased [None]
  - Product quality issue [None]
